FAERS Safety Report 5658725-6 (Version None)
Quarter: 2008Q1

REPORT INFORMATION
  Report Type: 
  Country: None (occurrence: None)
  Receive Date: 20080310
  Receipt Date: 20070406
  Transmission Date: 20080703
  Serious: No
  Sender: FDA-Public Use
  Company Number: US-BAYER-200711059BCC

PATIENT
  Age: 84 Year
  Sex: Female
  Weight: 64 kg

DRUGS (6)
  1. ALEVE [Suspect]
     Dosage: TOTAL DAILY DOSE: 220 MG  UNIT DOSE: 220 MG
     Route: 048
  2. ALEVE [Suspect]
     Dosage: TOTAL DAILY DOSE: 220 MG  UNIT DOSE: 220 MG
     Route: 048
  3. TYLENOL (CAPLET) [Concomitant]
  4. CIMETIDINE [Concomitant]
  5. VITAMIN B-12 [Concomitant]
  6. FOLIC ACID [Concomitant]

REACTIONS (1)
  - ANAEMIA [None]
